FAERS Safety Report 6686121-1 (Version None)
Quarter: 2010Q2

REPORT INFORMATION
  Report Type: 
  Country: None (occurrence: None)
  Receive Date: 20100419
  Receipt Date: 20100415
  Transmission Date: 20101027
  Serious: Yes (Hospitalization)
  Sender: FDA-Public Use
  Company Number: JP-BRISTOL-MYERS SQUIBB COMPANY-15039969

PATIENT
  Age: 47 Year
  Weight: 46 kg

DRUGS (7)
  1. BRIPLATIN [Suspect]
     Indication: CERVIX CARCINOMA RECURRENT
     Route: 042
     Dates: start: 20100222, end: 20100317
  2. LOXONIN [Suspect]
     Route: 048
     Dates: start: 20100208, end: 20100326
  3. MAGMITT [Suspect]
     Dosage: TAB
     Route: 048
     Dates: start: 20100214, end: 20100326
  4. ALOSENN [Suspect]
     Route: 048
     Dates: start: 20100219, end: 20100326
  5. SELBEX [Suspect]
     Route: 048
     Dates: start: 20100216, end: 20100326
  6. INCREMIN [Suspect]
     Route: 048
     Dates: start: 20100324, end: 20100326
  7. RHYTHMY [Suspect]
     Route: 048
     Dates: start: 20100216, end: 20100326

REACTIONS (1)
  - ABDOMINAL PAIN UPPER [None]
